FAERS Safety Report 9659175 (Version 1)
Quarter: 2013Q4

REPORT INFORMATION
  Report Type: Report from Study
  Country: AR (occurrence: AR)
  Receive Date: 20131031
  Receipt Date: 20131031
  Transmission Date: 20140711
  Serious: Yes (Other)
  Sender: FDA-Public Use
  Company Number: AR-ROCHE-1295315

PATIENT
  Age: 81 Year
  Sex: Female

DRUGS (1)
  1. LUCENTIS [Suspect]
     Indication: MACULOPATHY
     Dosage: EVERY TWO OR THREE MONTHS
     Route: 050

REACTIONS (3)
  - Visual field defect [Recovered/Resolved]
  - Maculopathy [Unknown]
  - Visual impairment [Unknown]
